FAERS Safety Report 10890418 (Version 1)
Quarter: 2015Q1

REPORT INFORMATION
  Report Type: Spontaneous
  Country: GB (occurrence: GB)
  Receive Date: 20150305
  Receipt Date: 20150305
  Transmission Date: 20150721
  Serious: Yes (Other)
  Sender: FDA-Public Use
  Company Number: GB-JNJFOC-20150214574

PATIENT
  Age: 63 Year
  Sex: Female
  Weight: 53.97 kg

DRUGS (2)
  1. SUDAFED NASAL DECONGESTANT MAXIMUM STRENGTH [Suspect]
     Active Substance: PSEUDOEPHEDRINE HYDROCHLORIDE
     Indication: NASAL CONGESTION
     Dosage: 2 X 5 ML SPOONFULS EVERY 4-6 HOURS
     Route: 065
  2. HYLO-FORTE [Concomitant]
     Indication: DRY EYE
     Route: 065

REACTIONS (4)
  - Sleep disorder [Recovered/Resolved]
  - Agitation [Recovered/Resolved]
  - Heart rate increased [Recovered/Resolved]
  - Restlessness [Recovered/Resolved]
